FAERS Safety Report 8003266-4 (Version None)
Quarter: 2011Q4

REPORT INFORMATION
  Report Type: 
  Country: None (occurrence: None)
  Receive Date: 20111222
  Receipt Date: 20111219
  Transmission Date: 20120403
  Serious: Yes (Death, Hospitalization)
  Sender: FDA-Public Use
  Company Number: PHEH2011US01706

PATIENT
  Sex: Male
  Weight: 111 kg

DRUGS (1)
  1. EXJADE [Suspect]
     Indication: MYELODYSPLASTIC SYNDROME
     Dosage: 1500 MG, DAILY
     Route: 048
     Dates: start: 20100801, end: 20110401

REACTIONS (3)
  - ANAEMIA [None]
  - INFECTION [None]
  - ACUTE LEUKAEMIA [None]
